FAERS Safety Report 17907746 (Version 1)
Quarter: 2020Q2

REPORT INFORMATION
  Report Type: Spontaneous
  Country: ES (occurrence: ES)
  Receive Date: 20200617
  Receipt Date: 20200617
  Transmission Date: 20200714
  Serious: Yes (Other)
  Sender: FDA-Public Use
  Company Number: ES-PFIZER INC-2020232087

PATIENT
  Age: 63 Year
  Sex: Male

DRUGS (7)
  1. AZITHROMYCIN ANHYDROUS. [Suspect]
     Active Substance: AZITHROMYCIN ANHYDROUS
     Indication: COVID-19 PNEUMONIA
     Dosage: UNK
     Dates: start: 20200518, end: 20200523
  2. FOLIC ACID. [Concomitant]
     Active Substance: FOLIC ACID
     Indication: ANAEMIA FOLATE DEFICIENCY
     Dosage: 5 MG/24 HOURS
     Route: 048
     Dates: start: 20200501
  3. TRIMBOW [Concomitant]
     Active Substance: BECLOMETHASONE DIPROPIONATE\FORMOTEROL FUMARATE\GLYCOPYRROLATE
     Indication: BRONCHITIS CHRONIC
     Dosage: 2 DF, 2X/DAY (2 DF/12 HOURS)
     Route: 055
     Dates: start: 20200214
  4. LOPINAVIR/RITONAVIR [Suspect]
     Active Substance: LOPINAVIR\RITONAVIR
     Indication: COVID-19 PNEUMONIA
     Dosage: 2 DF, 2X/DAY (2 DF/12 HOURS)
     Route: 048
     Dates: start: 20200518, end: 20200520
  5. ATROVENT [Concomitant]
     Active Substance: IPRATROPIUM BROMIDE
     Indication: BRONCHITIS CHRONIC
     Dosage: 40 UG, 4X/DAY (40 UG/ 6 HOURS)
     Route: 055
     Dates: start: 20190530
  6. HYDROXYCHLOROQUINE [Suspect]
     Active Substance: HYDROXYCHLOROQUINE
     Indication: COVID-19 PNEUMONIA
     Dosage: 200 MG, 2X/DAY (200 MG/12 HOURS)
     Route: 048
     Dates: start: 20200518, end: 20200523
  7. AMOXICILLIN/CLAVULANIC ACID [Suspect]
     Active Substance: AMOXICILLIN\CLAVULANIC ACID
     Indication: SUPERINFECTION MYCOBACTERIAL
     Dosage: 1 DF, 3X/DAY (1 DF/8 HOURS)
     Route: 042
     Dates: start: 20200518, end: 20200521

REACTIONS (3)
  - Abdominal discomfort [Recovered/Resolved]
  - Off label use [Unknown]
  - Product use in unapproved indication [Unknown]

NARRATIVE: CASE EVENT DATE: 20200518
